FAERS Safety Report 9363663 (Version 1)
Quarter: 2013Q2

REPORT INFORMATION
  Report Type: Report from Study
  Country: US (occurrence: US)
  Receive Date: 20130624
  Receipt Date: 20130624
  Transmission Date: 20140414
  Serious: Yes (Hospitalization)
  Sender: FDA-Public Use
  Company Number: US-ROCHE-1239590

PATIENT
  Sex: Female

DRUGS (6)
  1. XOLAIR [Suspect]
     Indication: ASTHMA
     Route: 058
     Dates: start: 2009, end: 201301
  2. XOLAIR [Suspect]
     Route: 058
     Dates: start: 2009, end: 201301
  3. ADVAIR [Concomitant]
     Indication: ASTHMA
     Route: 055
  4. SPIRIVA [Concomitant]
     Indication: ASTHMA
     Route: 055
  5. PREDNISONE [Concomitant]
     Route: 048
  6. PROAIR (UNITED STATES) [Concomitant]
     Indication: ASTHMA
     Dosage: AS REQUIRED
     Route: 055

REACTIONS (4)
  - Asthma [Unknown]
  - Asthma [Unknown]
  - Dyspnoea [Not Recovered/Not Resolved]
  - Hypersensitivity [Not Recovered/Not Resolved]
